FAERS Safety Report 4839949-4 (Version None)
Quarter: 2005Q4

REPORT INFORMATION
  Report Type: 
  Country: None (occurrence: None)
  Receive Date: 20051129
  Receipt Date: 20041222
  Transmission Date: 20060501
  Serious: Yes (Hospitalization)
  Sender: FDA-Public Use
  Company Number: DE-AMGEN-US104398

PATIENT
  Sex: Male

DRUGS (2)
  1. ETANERCEPT [Suspect]
     Indication: PSORIASIS
     Route: 058
     Dates: start: 20031028, end: 20040921
  2. CYCLOSPORINE [Concomitant]

REACTIONS (1)
  - HEPATIC STEATOSIS [None]
